FAERS Safety Report 7458054-4 (Version None)
Quarter: 2011Q2

REPORT INFORMATION
  Report Type: 
  Country: None (occurrence: None)
  Receive Date: 20110504
  Receipt Date: 20110428
  Transmission Date: 20111010
  Serious: Yes (Hospitalization)
  Sender: FDA-Public Use
  Company Number: FR-PFIZER INC-2011091321

PATIENT
  Age: 68 Year
  Sex: Female

DRUGS (4)
  1. NOROXIN [Suspect]
     Dosage: 400 MG, 1X/DAY
     Route: 048
     Dates: start: 20110101, end: 20110406
  2. ALDACTONE [Suspect]
     Dosage: 75 MG, 2X/DAY
     Route: 048
     Dates: start: 20110101, end: 20110406
  3. LASIX [Suspect]
     Dosage: 40 MG, 1X/DAY
     Route: 048
     Dates: start: 20110201, end: 20110406
  4. BEVITINE [Concomitant]
     Dosage: 3 DF, 1X/DAY
     Route: 048
     Dates: start: 20110101, end: 20110406

REACTIONS (7)
  - AGRANULOCYTOSIS [None]
  - BLOOD POTASSIUM INCREASED [None]
  - THROMBOCYTOPENIA [None]
  - HAEMOGLOBIN DECREASED [None]
  - HYPERBILIRUBINAEMIA [None]
  - RED BLOOD CELL COUNT DECREASED [None]
  - ASCITES [None]
